FAERS Safety Report 11025407 (Version 1)
Quarter: 2015Q2

REPORT INFORMATION
  Report Type: Spontaneous
  Country: US (occurrence: None)
  Receive Date: 20150413
  Receipt Date: 20150413
  Transmission Date: 20150821
  Serious: Yes (Other)
  Sender: FDA-Public Use
  Company Number: None

PATIENT
  Age: 45 Year
  Sex: Female
  Weight: 65.6 kg

DRUGS (1)
  1. GADOTERIDOL [Suspect]
     Active Substance: GADOTERIDOL
     Indication: NUCLEAR MAGNETIC RESONANCE IMAGING
     Dosage: ONE TIME DOSE
     Route: 042
     Dates: start: 20141201

REACTIONS (4)
  - Pruritus [None]
  - Hypoaesthesia [None]
  - Urticaria [None]
  - Paraesthesia [None]

NARRATIVE: CASE EVENT DATE: 20141201
